FAERS Safety Report 22272420 (Version 1)
Quarter: 2023Q2

REPORT INFORMATION
  Report Type: Spontaneous
  Country: JP (occurrence: None)
  Receive Date: 20230502
  Receipt Date: 20230502
  Transmission Date: 20230722
  Serious: Yes (Hospitalization, Other)
  Sender: FDA-Public Use
  Company Number: 2023A098219

PATIENT
  Age: 62 Year
  Sex: Female

DRUGS (3)
  1. LYNPARZA [Suspect]
     Active Substance: OLAPARIB
     Indication: Malignant peritoneal neoplasm
     Dosage: DOSE UNKNOWN
     Route: 048
     Dates: start: 202204
  2. BEVACIZUMAB [Concomitant]
     Active Substance: BEVACIZUMAB
     Indication: Malignant peritoneal neoplasm
     Dosage: DOSE UNKNOWN
     Route: 065
     Dates: start: 202204, end: 202301
  3. ELIQUIS [Concomitant]
     Active Substance: APIXABAN
     Indication: Deep vein thrombosis
     Dosage: DOSE UNKNOWN
     Route: 065
     Dates: start: 20230125

REACTIONS (3)
  - Pancytopenia [Not Recovered/Not Resolved]
  - Pneumonia bacterial [Recovering/Resolving]
  - Myelosuppression [Unknown]

NARRATIVE: CASE EVENT DATE: 20230401
